FAERS Safety Report 6822210-6 (Version None)
Quarter: 2010Q3

REPORT INFORMATION
  Report Type: 
  Country: None (occurrence: None)
  Receive Date: 20100708
  Receipt Date: 20100628
  Transmission Date: 20110219
  Serious: Yes (Hospitalization)
  Sender: FDA-Public Use
  Company Number: GB-WYE-G06289110

PATIENT
  Age: 87 Year
  Sex: Female

DRUGS (2)
  1. VENLAFAXINE HYDROCHLORIDE [Suspect]
     Indication: DEPRESSED MOOD
     Route: 048
     Dates: start: 20100218, end: 20100513
  2. MADOPAR [Concomitant]
     Indication: PARKINSON'S DISEASE
     Dosage: UNKNOWN

REACTIONS (5)
  - AKATHISIA [None]
  - CONCOMITANT DISEASE PROGRESSION [None]
  - DEMENTIA [None]
  - DYSTONIA [None]
  - RESTLESSNESS [None]
